FAERS Safety Report 7421185-9 (Version None)
Quarter: 2011Q2

REPORT INFORMATION
  Report Type: 
  Country: None (occurrence: None)
  Receive Date: 20110418
  Receipt Date: 20110322
  Transmission Date: 20111010
  Serious: No
  Sender: FDA-Public Use
  Company Number: US-B.I. PHARMACEUTICALS,INC./RIDGEFIELD-2011-BP-04525BP

PATIENT
  Sex: Female

DRUGS (4)
  1. DIOVAN [Concomitant]
     Indication: HYPERTENSION
     Dosage: 160 MG
  2. LABETALOL [Concomitant]
     Indication: HYPERTENSION
     Dosage: 600 MG
  3. ASPIRIN [Concomitant]
     Indication: PROPHYLAXIS
  4. PRADAXA [Suspect]
     Indication: ATRIAL FIBRILLATION
     Dosage: 300 MG
     Route: 048
     Dates: start: 20101223

REACTIONS (9)
  - PAIN IN EXTREMITY [None]
  - ASTHENIA [None]
  - BLOOD DISORDER [None]
  - HEADACHE [None]
  - JOINT SWELLING [None]
  - VISION BLURRED [None]
  - OEDEMA PERIPHERAL [None]
  - ARTHRALGIA [None]
  - EPISTAXIS [None]
